FAERS Safety Report 25726135 (Version 1)
Quarter: 2025Q3

REPORT INFORMATION
  Report Type: Report from Study
  Country: PK (occurrence: PK)
  Receive Date: 20250826
  Receipt Date: 20250826
  Transmission Date: 20251020
  Serious: Yes (Other)
  Sender: ROCHE
  Company Number: PK-ROCHE-10000372932

PATIENT
  Age: 39 Year
  Sex: Female

DRUGS (2)
  1. HERCEPTIN [Suspect]
     Active Substance: TRASTUZUMAB
     Indication: Breast cancer
     Dosage: 18 CYCLES WITH INTERVAL OF 3 WEEKLY
     Route: 058
     Dates: start: 20250815
  2. HERCEPTIN [Suspect]
     Active Substance: TRASTUZUMAB
     Dosage: 18 CYCLES WITH INTERVAL OF 3 WEEKLY
     Route: 058
     Dates: start: 202507

REACTIONS (1)
  - Disease progression [Unknown]
